FAERS Safety Report 19181899 (Version 3)
Quarter: 2022Q2

REPORT INFORMATION
  Report Type: Report from Study
  Country: DE (occurrence: DE)
  Receive Date: 20210426
  Receipt Date: 20220413
  Transmission Date: 20220720
  Serious: Yes (Hospitalization, Other)
  Sender: FDA-Public Use
  Company Number: DE-BAXTER-2014BAX067056

PATIENT
  Age: 44 Year
  Sex: Male
  Weight: 65 kg

DRUGS (19)
  1. ADVATE [Suspect]
     Active Substance: ANTIHEMOPHILIC FACTOR, HUMAN RECOMBINANT
     Indication: Prophylaxis
     Dosage: 1000IU (INTERNATIONAL UNIT)EVERY 2 DY
     Route: 042
     Dates: start: 2008
  2. ADVATE [Suspect]
     Active Substance: ANTIHEMOPHILIC FACTOR, HUMAN RECOMBINANT
     Indication: Prophylaxis
     Dosage: 1000IU (INTERNATIONAL UNIT)EVERY 2 DY
     Route: 042
     Dates: start: 2008
  3. ADVATE [Suspect]
     Active Substance: ANTIHEMOPHILIC FACTOR, HUMAN RECOMBINANT
     Indication: Prophylaxis
     Dosage: 1000IU (INTERNATIONAL UNIT)EVERY 2 DY
     Route: 042
     Dates: start: 2008
  4. ADVATE [Suspect]
     Active Substance: ANTIHEMOPHILIC FACTOR, HUMAN RECOMBINANT
     Indication: Factor VIII deficiency
  5. ADVATE [Suspect]
     Active Substance: ANTIHEMOPHILIC FACTOR, HUMAN RECOMBINANT
     Indication: Factor VIII deficiency
  6. ADVATE [Suspect]
     Active Substance: ANTIHEMOPHILIC FACTOR, HUMAN RECOMBINANT
     Indication: Factor VIII deficiency
  7. NEVIRAPINE [Concomitant]
     Active Substance: NEVIRAPINE
     Indication: Antiretroviral therapy
     Dosage: 200 MILLIGRAM, BID
     Route: 048
     Dates: start: 20071027, end: 20160310
  8. NEVIRAPINE [Concomitant]
     Active Substance: NEVIRAPINE
     Dosage: 200 MILLIGRAM, QD
     Route: 048
     Dates: start: 201705
  9. COMBIVIR [Concomitant]
     Active Substance: LAMIVUDINE\ZIDOVUDINE
     Indication: Antiretroviral therapy
     Dosage: 150MG/300MG
     Route: 048
     Dates: start: 20071027, end: 20120403
  10. ACETAZOLAMIDE [Concomitant]
     Active Substance: ACETAZOLAMIDE
     Indication: Glaucoma
     Dosage: 250MILLIGRAM1X A DAY
     Route: 048
     Dates: start: 20120224
  11. TRUVADA [Concomitant]
     Active Substance: EMTRICITABINE\TENOFOVIR DISOPROXIL FUMARATE
     Indication: Antiretroviral therapy
     Dosage: 300MG/200MG
     Route: 048
     Dates: start: 20120403, end: 201705
  12. CANDESARTAN CILEXETIL [Concomitant]
     Active Substance: CANDESARTAN CILEXETIL
     Indication: Hypertension
     Dosage: 16 MILLIGRAM, QD
     Route: 048
     Dates: start: 20140401
  13. FEXOFENADINE [Concomitant]
     Active Substance: FEXOFENADINE HYDROCHLORIDE
     Indication: Rhinitis allergic
     Dosage: 1
     Route: 048
  14. FLORADIX EISEN [Concomitant]
     Indication: Vertigo
     Dosage: 10 MILLILITER, PRN
     Route: 048
     Dates: start: 20131016
  15. ISENTRESS [Concomitant]
     Active Substance: RALTEGRAVIR POTASSIUM
     Indication: Antiretroviral therapy
     Dosage: 400 MILLIGRAM, BID
     Route: 048
     Dates: start: 20160311, end: 201705
  16. DESCOVY [Concomitant]
     Active Substance: EMTRICITABINE\TENOFOVIR ALAFENAMIDE FUMARATE
     Indication: Antiretroviral therapy
     Dosage: 200MG/25MG, QD
     Route: 048
     Dates: start: 201705
  17. SOVALDI [Concomitant]
     Active Substance: SOFOSBUVIR
     Indication: Antiviral treatment
     Dosage: 400 MILLIGRAM, QD
     Route: 048
     Dates: start: 201605, end: 201609
  18. DAKLINZA [Concomitant]
     Active Substance: DACLATASVIR
     Indication: Antiviral treatment
     Dosage: 60 MILLIGRAM, QD
     Route: 048
     Dates: start: 201605, end: 201609
  19. HYALURONATE SODIUM [Concomitant]
     Active Substance: HYALURONATE SODIUM
     Indication: Glaucoma
     Dosage: UNK
     Route: 031

REACTIONS (2)
  - Glaucoma [Recovered/Resolved with Sequelae]
  - Iris neovascularisation [Recovered/Resolved with Sequelae]

NARRATIVE: CASE EVENT DATE: 20120101
